FAERS Safety Report 11845710 (Version 1)
Quarter: 2015Q4

REPORT INFORMATION
  Report Type: Spontaneous
  Country: US (occurrence: US)
  Receive Date: 20151217
  Receipt Date: 20151217
  Transmission Date: 20160305
  Serious: Yes (Hospitalization)
  Sender: FDA-Public Use
  Company Number: US-MYLANLABS-2015M1045181

PATIENT

DRUGS (3)
  1. PAZOPANIB [Interacting]
     Active Substance: PAZOPANIB
     Indication: PRODUCT USED FOR UNKNOWN INDICATION
     Dosage: 800 MG/DAY
     Route: 065
  2. CARBOPLATIN. [Suspect]
     Active Substance: CARBOPLATIN
     Indication: PRODUCT USED FOR UNKNOWN INDICATION
     Dosage: CARBOPLATIN DOSED AT 5 OR 6 AREA GIVEN EVERY 21 DAYS IN A CYCLE
     Route: 065
  3. PACLITAXEL. [Interacting]
     Active Substance: PACLITAXEL
     Indication: PRODUCT USED FOR UNKNOWN INDICATION
     Dosage: 175 MG/M2 GIVEN EVERY 21 DAYS IN A CYCLE
     Route: 065

REACTIONS (16)
  - Bone marrow failure [Unknown]
  - Posterior reversible encephalopathy syndrome [Unknown]
  - Febrile neutropenia [Recovered/Resolved]
  - Headache [Unknown]
  - Decreased appetite [Unknown]
  - Dysuria [Recovered/Resolved]
  - Vomiting [Recovered/Resolved]
  - Confusional state [Unknown]
  - Renal failure [Recovered/Resolved]
  - Diarrhoea [Recovered/Resolved]
  - Nausea [Recovered/Resolved]
  - Drug interaction [Unknown]
  - Seizure [Unknown]
  - Vision blurred [Unknown]
  - Gait disturbance [Unknown]
  - Asthenia [Unknown]
